FAERS Safety Report 9281438 (Version 3)
Quarter: 2013Q2

REPORT INFORMATION
  Report Type: Spontaneous
  Country: US (occurrence: US)
  Receive Date: 20130509
  Receipt Date: 20130619
  Transmission Date: 20140414
  Serious: Yes (Death, Hospitalization, Other)
  Sender: FDA-Public Use
  Company Number: US-BAXTER-2013BAX016652

PATIENT
  Sex: Female

DRUGS (1)
  1. DIANEAL LOW CALCIUM [Suspect]
     Indication: PERITONEAL DIALYSIS
     Route: 033
     Dates: start: 201207, end: 20130531

REACTIONS (7)
  - Cardiac failure [Fatal]
  - Intestinal ischaemia [Fatal]
  - Renal failure chronic [Fatal]
  - Dizziness [Recovering/Resolving]
  - Fall [Recovering/Resolving]
  - Multimorbidity [Unknown]
  - Asthenia [Not Recovered/Not Resolved]
